FAERS Safety Report 9294330 (Version 1)
Quarter: 2013Q2

REPORT INFORMATION
  Report Type: Spontaneous
  Country: US (occurrence: US)
  Receive Date: 20130517
  Receipt Date: 20130517
  Transmission Date: 20140414
  Serious: Yes (Other)
  Sender: FDA-Public Use
  Company Number: US-AMGEN-USASP2013027455

PATIENT
  Age: 43 Year
  Sex: Female
  Weight: 69.84 kg

DRUGS (7)
  1. ENBREL [Suspect]
     Indication: PRODUCT USED FOR UNKNOWN INDICATION
     Dosage: 50 MG, QWK
     Route: 058
     Dates: start: 20100709, end: 201304
  2. LEVOTHYROXIN [Concomitant]
     Dosage: 100 MUG, UNK
  3. GINKGO                             /01003101/ [Concomitant]
     Dosage: 60 MG, UNK
  4. LEXAPRO [Concomitant]
     Dosage: 10 MG, UNK
  5. VITAMIN D /00107901/ [Concomitant]
     Dosage: 1000 UNIT, UNK
  6. VITAMIN C                          /00008001/ [Concomitant]
     Dosage: 500 MG, UNK
  7. B COMPLEX                          /00212701/ [Concomitant]
     Dosage: UNK

REACTIONS (3)
  - Upper respiratory fungal infection [Recovered/Resolved]
  - Tonsillitis [Recovered/Resolved]
  - Upper respiratory tract infection [Not Recovered/Not Resolved]
